FAERS Safety Report 17386478 (Version 1)
Quarter: 2020Q1

REPORT INFORMATION
  Report Type: Spontaneous
  Country: ES (occurrence: ES)
  Receive Date: 20200206
  Receipt Date: 20200206
  Transmission Date: 20200409
  Serious: Yes (Life-Threatening, Hospitalization)
  Sender: FDA-Public Use
  Company Number: ES-PFIZER INC-2020049335

PATIENT
  Age: 55 Year
  Sex: Female

DRUGS (1)
  1. GEMCITABINE HYDROCHLORIDE. [Suspect]
     Active Substance: GEMCITABINE HYDROCHLORIDE
     Dosage: UNK
     Route: 042
     Dates: start: 20190430, end: 20190507

REACTIONS (4)
  - Anaemia [Recovered/Resolved]
  - Pyrexia [Recovered/Resolved]
  - Agranulocytosis [Recovered/Resolved]
  - Thrombocytopenia [Recovered/Resolved]

NARRATIVE: CASE EVENT DATE: 201905
